FAERS Safety Report 23132004 (Version 1)
Quarter: 2023Q4

REPORT INFORMATION
  Report Type: Spontaneous
  Country: US (occurrence: US)
  Receive Date: 20231101
  Receipt Date: 20231101
  Transmission Date: 20240110
  Serious: No
  Sender: FDA-Public Use
  Company Number: US-Accord-284853

PATIENT
  Sex: Female

DRUGS (3)
  1. ESCITALOPRAM [Suspect]
     Active Substance: ESCITALOPRAM OXALATE
     Indication: Anxiety
     Dosage: 10MG ONCE DAILY
  2. LIVALO [Concomitant]
     Active Substance: PITAVASTATIN CALCIUM
  3. AMLODIPINE [Concomitant]
     Active Substance: AMLODIPINE BESYLATE

REACTIONS (8)
  - Hypertension [Unknown]
  - Headache [Unknown]
  - Nausea [Unknown]
  - Muscle rigidity [Unknown]
  - Dry mouth [Unknown]
  - Muscle disorder [Unknown]
  - Viral infection [Unknown]
  - Feeling abnormal [Unknown]
